FAERS Safety Report 6837258-5 (Version None)
Quarter: 2010Q3

REPORT INFORMATION
  Report Type: 
  Country: None (occurrence: None)
  Receive Date: 20100713
  Receipt Date: 20070507
  Transmission Date: 20110219
  Serious: Yes (Other)
  Sender: FDA-Public Use
  Company Number: US-PFIZER INC-2007038110

PATIENT
  Sex: Male
  Weight: 93.2 kg

DRUGS (8)
  1. CHANTIX [Suspect]
     Indication: SMOKING CESSATION THERAPY
     Dates: start: 20070101
  2. GLUCOPHAGE [Concomitant]
  3. ACETYLSALICYLIC ACID SRT [Concomitant]
  4. AVAPRO [Concomitant]
  5. INSULIN [Concomitant]
  6. KLONOPIN [Concomitant]
  7. VICODIN [Concomitant]
  8. CELEXA [Concomitant]

REACTIONS (3)
  - CONSTIPATION [None]
  - NAUSEA [None]
  - VOMITING [None]
